FAERS Safety Report 12054321 (Version 7)
Quarter: 2016Q3

REPORT INFORMATION
  Report Type: Report from Study
  Country: CA (occurrence: CA)
  Receive Date: 20160209
  Receipt Date: 20160810
  Transmission Date: 20161109
  Serious: Yes (Life-Threatening, Hospitalization, Other)
  Sender: FDA-Public Use
  Company Number: CA-JNJFOC-20160104726

PATIENT
  Age: 61 Year
  Sex: Female
  Weight: 106 kg

DRUGS (18)
  1. ATORVASTATIN [Concomitant]
     Active Substance: ATORVASTATIN
     Route: 065
  2. SYNTHROID [Concomitant]
     Active Substance: LEVOTHYROXINE SODIUM
     Route: 065
  3. REMICADE [Suspect]
     Active Substance: INFLIXIMAB
     Indication: COLITIS ULCERATIVE
     Dosage: TOTAL DOSE: 500 MG
     Route: 042
     Dates: start: 20150808
  4. IMURAN [Concomitant]
     Active Substance: AZATHIOPRINE
     Route: 065
  5. FLUOXETINE [Concomitant]
     Active Substance: FLUOXETINE HYDROCHLORIDE
     Route: 065
  6. TRAZODONE [Concomitant]
     Active Substance: TRAZODONE HYDROCHLORIDE
     Indication: SLEEP DISORDER THERAPY
     Route: 065
  7. COVERSYL [Concomitant]
     Active Substance: PERINDOPRIL
     Route: 065
  8. PROZAC [Concomitant]
     Active Substance: FLUOXETINE HYDROCHLORIDE
     Route: 065
  9. REMICADE [Suspect]
     Active Substance: INFLIXIMAB
     Indication: COLITIS ULCERATIVE
     Route: 042
     Dates: start: 20160428
  10. RAMIPRIL. [Concomitant]
     Active Substance: RAMIPRIL
     Route: 065
  11. NORVASC [Concomitant]
     Active Substance: AMLODIPINE BESYLATE
     Route: 065
  12. COVERSYL [Concomitant]
     Active Substance: PERINDOPRIL
     Route: 065
  13. REMICADE [Suspect]
     Active Substance: INFLIXIMAB
     Indication: COLITIS ULCERATIVE
     Route: 042
     Dates: start: 20160623
  14. REMICADE [Suspect]
     Active Substance: INFLIXIMAB
     Indication: COLITIS ULCERATIVE
     Route: 042
     Dates: start: 20160805
  15. REMICADE [Suspect]
     Active Substance: INFLIXIMAB
     Indication: COLITIS ULCERATIVE
     Route: 042
     Dates: start: 20150908
  16. INDAPAMIDE. [Concomitant]
     Active Substance: INDAPAMIDE
     Route: 065
  17. LIPITOR [Concomitant]
     Active Substance: ATORVASTATIN CALCIUM
     Route: 065
  18. ZENHALE [Concomitant]
     Active Substance: FORMOTEROL FUMARATE\MOMETASONE FUROATE
     Route: 065

REACTIONS (8)
  - General physical health deterioration [Not Recovered/Not Resolved]
  - Arthritis [Unknown]
  - Vascular pseudoaneurysm [Unknown]
  - Bladder transitional cell carcinoma [Unknown]
  - Drug ineffective [Unknown]
  - Colitis ulcerative [Not Recovered/Not Resolved]
  - Renal haemorrhage [Unknown]
  - Blood pressure increased [Unknown]

NARRATIVE: CASE EVENT DATE: 20151225
